FAERS Safety Report 5269548-4 (Version None)
Quarter: 2007Q1

REPORT INFORMATION
  Report Type: 
  Country: None (occurrence: None)
  Receive Date: 20070320
  Receipt Date: 20070309
  Transmission Date: 20070707
  Serious: Yes (Hospitalization)
  Sender: FDA-Public Use
  Company Number: FR-AVENTIS-200710860FR

PATIENT
  Age: 69 Year
  Sex: Male
  Weight: 71 kg

DRUGS (6)
  1. SOLUPRED                           /00016201/ [Suspect]
     Route: 048
     Dates: start: 20070101
  2. LOVENOX [Suspect]
     Route: 058
     Dates: start: 20070117
  3. KARDEGIC                           /00002703/ [Suspect]
     Indication: DRUG USE FOR UNKNOWN INDICATION
     Route: 048
  4. CARBOPLATINE DAKOTA [Suspect]
     Route: 042
     Dates: start: 20070205, end: 20070205
  5. VASTAREL [Suspect]
     Indication: DRUG USE FOR UNKNOWN INDICATION
     Route: 048
  6. TAXOL [Suspect]
     Route: 042
     Dates: start: 20070205, end: 20070205

REACTIONS (2)
  - ISCHAEMIC STROKE [None]
  - SPEECH DISORDER [None]
